FAERS Safety Report 14940219 (Version 1)
Quarter: 2018Q2

REPORT INFORMATION
  Report Type: Spontaneous
  Country: US (occurrence: US)
  Receive Date: 20180525
  Receipt Date: 20180525
  Transmission Date: 20180711
  Serious: No
  Sender: FDA-Public Use
  Company Number: US-GLAXOSMITHKLINE-US2018089416

PATIENT
  Age: 33 Year
  Sex: Female

DRUGS (1)
  1. FLONASE [Suspect]
     Active Substance: FLUTICASONE PROPIONATE
     Indication: SEASONAL ALLERGY
     Dosage: UNK
     Dates: start: 20180517, end: 20180517

REACTIONS (5)
  - Rhinorrhoea [Unknown]
  - Epistaxis [Recovered/Resolved]
  - Sneezing [Unknown]
  - Off label use [Unknown]
  - Sinus headache [Unknown]

NARRATIVE: CASE EVENT DATE: 20180517
